FAERS Safety Report 25798168 (Version 1)
Quarter: 2025Q3

REPORT INFORMATION
  Report Type: Spontaneous
  Country: US (occurrence: US)
  Receive Date: 20250912
  Receipt Date: 20250912
  Transmission Date: 20251021
  Serious: No
  Sender: MERCK SHARP & DOHME LLC
  Company Number: US-009507513-2322738

PATIENT
  Age: 66 Year
  Sex: Female
  Weight: 99.8 kg

DRUGS (25)
  1. SOTATERCEPT [Suspect]
     Active Substance: SOTATERCEPT
     Dates: end: 202508
  2. SOTATERCEPT [Suspect]
     Active Substance: SOTATERCEPT
  3. SOTATERCEPT [Suspect]
     Active Substance: SOTATERCEPT
  4. SOTATERCEPT [Suspect]
     Active Substance: SOTATERCEPT
  5. REMODULIN [Concomitant]
     Active Substance: TREPROSTINIL
     Route: 058
     Dates: start: 20250107
  6. ADEMPAS [Concomitant]
     Active Substance: RIOCIGUAT
  7. OXYBUTYNIN CHLORIDE [Concomitant]
     Active Substance: OXYBUTYNIN CHLORIDE
  8. FUROSEMIDE [Concomitant]
     Active Substance: FUROSEMIDE
  9. PYRIDOXINE [Concomitant]
     Active Substance: PYRIDOXINE
  10. ACETAMINOPHEN\HYDROCODONE [Concomitant]
     Active Substance: ACETAMINOPHEN\HYDROCODONE
  11. SPIRIVA [Concomitant]
     Active Substance: TIOTROPIUM BROMIDE MONOHYDRATE
  12. ELIQUIS [Concomitant]
     Active Substance: APIXABAN
  13. FOLIC ACID [Concomitant]
     Active Substance: FOLIC ACID
  14. LEVOTHYROXINE [Concomitant]
     Active Substance: LEVOTHYROXINE
  15. SODIUM CHLORIDE [Concomitant]
     Active Substance: SODIUM CHLORIDE
  16. ALBUTEROL SULFATE [Concomitant]
     Active Substance: ALBUTEROL SULFATE
  17. CYANOCOBALAMIN [Concomitant]
     Active Substance: CYANOCOBALAMIN
  18. VITAMIN D2 [Concomitant]
     Active Substance: ERGOCALCIFEROL
  19. LETAIRIS [Concomitant]
     Active Substance: AMBRISENTAN
  20. BENADRYL [Concomitant]
     Active Substance: DIPHENHYDRAMINE HYDROCHLORIDE
  21. OXYGEN [Concomitant]
     Active Substance: OXYGEN
  22. OMEPRAZOLE [Concomitant]
     Active Substance: OMEPRAZOLE
  23. CETIRIZINE HCL [Concomitant]
     Active Substance: CETIRIZINE HYDROCHLORIDE
  24. ASPIRIN [Concomitant]
     Active Substance: ASPIRIN
  25. LOPERAMIDE [Concomitant]
     Active Substance: LOPERAMIDE

REACTIONS (1)
  - Blood test abnormal [Unknown]

NARRATIVE: CASE EVENT DATE: 20250809
